FAERS Safety Report 4314940-5 (Version None)
Quarter: 2004Q1

REPORT INFORMATION
  Report Type: 
  Country: None (occurrence: None)
  Receive Date: 20040310
  Receipt Date: 20040310
  Transmission Date: 20041129
  Serious: Yes (Life-Threatening, Hospitalization, Other)
  Sender: FDA-Public Use
  Company Number: None

PATIENT
  Age: 13 Year
  Sex: Female

DRUGS (1)
  1. PAXIL [Suspect]
     Indication: DEPRESSION
     Dosage: 12.5MG INCREASED
     Dates: start: 20030319, end: 20030425

REACTIONS (5)
  - ABNORMAL BEHAVIOUR [None]
  - CONFUSIONAL STATE [None]
  - LEGAL PROBLEM [None]
  - PERSONALITY DISORDER [None]
  - PYROMANIA [None]
